FAERS Safety Report 18005610 (Version 2)
Quarter: 2020Q3

REPORT INFORMATION
  Report Type: Report from Study
  Country: PL (occurrence: PL)
  Receive Date: 20200710
  Receipt Date: 20200717
  Transmission Date: 20201103
  Serious: Yes (Death)
  Sender: FDA-Public Use
  Company Number: PL-MYLANLABS-2020M1062703

PATIENT
  Sex: Female
  Weight: 61 kg

DRUGS (6)
  1. CETUXIMAB. [Suspect]
     Active Substance: CETUXIMAB
     Dosage: 846 MILLIGRAM
     Route: 042
     Dates: start: 20191203
  2. FOLINIC ACID [Suspect]
     Active Substance: LEUCOVORIN
     Indication: COLORECTAL CANCER METASTATIC
     Dosage: 100 MILLIGRAM, Q2W
     Route: 042
     Dates: start: 20190912, end: 20191204
  3. IRINOTECAN [Suspect]
     Active Substance: IRINOTECAN
     Indication: COLORECTAL CANCER METASTATIC
     Dosage: 180 MILLIGRAM, Q2W
     Route: 042
     Dates: start: 20190912, end: 20191204
  4. CETUXIMAB. [Suspect]
     Active Substance: CETUXIMAB
     Indication: COLORECTAL CANCER METASTATIC
     Dosage: 851 MILLIGRAM
     Route: 042
     Dates: start: 20190912
  5. FLUOROURACIL. [Suspect]
     Active Substance: FLUOROURACIL
     Indication: COLORECTAL CANCER METASTATIC
     Dosage: 400 MILLIGRAM, Q2W
     Route: 040
     Dates: start: 20190912, end: 20191204
  6. FLUOROURACIL. [Suspect]
     Active Substance: FLUOROURACIL
     Dosage: 600 MILLIGRAM, Q2W
     Route: 042
     Dates: start: 20190912, end: 20191204

REACTIONS (1)
  - Death [Fatal]

NARRATIVE: CASE EVENT DATE: 20200321
